FAERS Safety Report 8780471 (Version 1)
Quarter: 2012Q4

REPORT INFORMATION
  Report Type: Spontaneous
  Country: US (occurrence: None)
  Receive Date: 20120906
  Receipt Date: 20120906
  Transmission Date: 20130627
  Serious: Yes (Other)
  Sender: FDA-Public Use
  Company Number: None

PATIENT
  Age: 50 Year
  Sex: Female
  Weight: 77.11 kg

DRUGS (7)
  1. NOVOLOG FLEXPEN [Suspect]
     Indication: INSULIN-DEPENDENT DIABETES MELLITUS
     Route: 058
     Dates: start: 20120718, end: 20120719
  2. NOVOLOG FLEXPEN [Suspect]
     Indication: INSULIN-DEPENDENT DIABETES MELLITUS
     Route: 058
     Dates: start: 20120718, end: 20120719
  3. NOVOLOG FLEXPEN [Suspect]
     Indication: INSULIN-DEPENDENT DIABETES MELLITUS
  4. NOVOLOG FLEXPEN [Suspect]
     Indication: INSULIN-DEPENDENT DIABETES MELLITUS
  5. NOVOLOG FLEXPEN [Suspect]
     Indication: INSULIN-DEPENDENT DIABETES MELLITUS
  6. NOVOLOG FLEXPEN [Suspect]
     Indication: INSULIN-DEPENDENT DIABETES MELLITUS
  7. BD STERILE NEEDLE [Concomitant]

REACTIONS (1)
  - Device failure [None]
